FAERS Safety Report 21728340 (Version 9)
Quarter: 2023Q1

REPORT INFORMATION
  Report Type: Spontaneous
  Country: US (occurrence: US)
  Receive Date: 20221214
  Receipt Date: 20230123
  Transmission Date: 20230418
  Serious: Yes (Other)
  Sender: FDA-Public Use
  Company Number: US-PFIZER INC-202201356058

PATIENT
  Age: 88 Year
  Sex: Female
  Weight: 74.84 kg

DRUGS (1)
  1. PREMARIN [Suspect]
     Active Substance: ESTROGENS, CONJUGATED
     Indication: Hot flush
     Dosage: 0.3 MG, DAILY
     Route: 048
     Dates: end: 2022

REACTIONS (9)
  - Neuropathy peripheral [Unknown]
  - Visual impairment [Unknown]
  - Hyperhidrosis [Unknown]
  - Night sweats [Unknown]
  - Disease recurrence [Unknown]
  - Nervousness [Unknown]
  - Cognitive disorder [Unknown]
  - Middle insomnia [Unknown]
  - Confusional state [Unknown]
